FAERS Safety Report 23456508 (Version 1)
Quarter: 2024Q1

REPORT INFORMATION
  Report Type: Spontaneous
  Country: US (occurrence: US)
  Receive Date: 20240130
  Receipt Date: 20240130
  Transmission Date: 20240409
  Serious: No
  Sender: FDA-Public Use
  Company Number: US-TARSUS PHARMACEUTICALS-TSP-US-2024-000019

PATIENT
  Age: 48 Year

DRUGS (1)
  1. XDEMVY [Suspect]
     Active Substance: LOTILANER
     Indication: Product used for unknown indication
     Dosage: UNK
     Route: 065
     Dates: start: 20240112

REACTIONS (1)
  - Hypoaesthesia oral [Unknown]

NARRATIVE: CASE EVENT DATE: 20240112
